FAERS Safety Report 13229017 (Version 1)
Quarter: 2017Q1

REPORT INFORMATION
  Report Type: Spontaneous
  Country: AR (occurrence: AR)
  Receive Date: 20170213
  Receipt Date: 20170213
  Transmission Date: 20170428
  Serious: Yes (Other)
  Sender: FDA-Public Use
  Company Number: AR-AMGEN-ARGSP2016055127

PATIENT
  Age: 77 Year
  Sex: Female

DRUGS (1)
  1. ENBREL [Suspect]
     Active Substance: ETANERCEPT
     Indication: RHEUMATOID ARTHRITIS
     Dosage: 50 MG, WEEKLY
     Route: 065
     Dates: start: 20060204

REACTIONS (4)
  - Skin abrasion [Recovering/Resolving]
  - Fall [Recovering/Resolving]
  - Bone marrow disorder [Unknown]
  - Dysplasia [Unknown]

NARRATIVE: CASE EVENT DATE: 20170201
